FAERS Safety Report 4294298-0 (Version None)
Quarter: 2004Q1

REPORT INFORMATION
  Report Type: 
  Country: None (occurrence: None)
  Receive Date: 20040211
  Receipt Date: 20040203
  Transmission Date: 20041129
  Serious: Yes (Other)
  Sender: FDA-Public Use
  Company Number: US-JNJFOC-20040200776

PATIENT
  Age: 35 Year
  Sex: Male

DRUGS (1)
  1. REOPRO [Suspect]
     Indication: CORONARY ARTERY SURGERY
     Dosage: SECOND DOSE OF REOPRO GIVEN ON 22-JAN-2004
     Dates: start: 20040112

REACTIONS (5)
  - CARDIAC DISORDER [None]
  - EPISTAXIS [None]
  - PETECHIAE [None]
  - PLATELET COUNT DECREASED [None]
  - RECTAL HAEMORRHAGE [None]
